FAERS Safety Report 5374886-0 (Version None)
Quarter: 2007Q2

REPORT INFORMATION
  Report Type: 
  Country: None (occurrence: None)
  Receive Date: 20070629
  Receipt Date: 20070625
  Transmission Date: 20071010
  Serious: Yes (Death)
  Sender: FDA-Public Use
  Company Number: FI-MERCK-0706FIN00006

PATIENT
  Age: 41 Year
  Sex: Male

DRUGS (3)
  1. ZETIA [Suspect]
     Indication: TYPE IIA HYPERLIPIDAEMIA
     Route: 048
     Dates: start: 20040322, end: 20040503
  2. CRESTOR [Concomitant]
     Indication: TYPE IIA HYPERLIPIDAEMIA
     Route: 048
     Dates: start: 20040129, end: 20040503
  3. CRESTOR [Concomitant]
     Route: 048
     Dates: start: 20031211, end: 20040128

REACTIONS (1)
  - SUDDEN DEATH [None]
